FAERS Safety Report 7643670-7 (Version None)
Quarter: 2011Q3

REPORT INFORMATION
  Report Type: 
  Country: None (occurrence: None)
  Receive Date: 20110729
  Receipt Date: 20110721
  Transmission Date: 20111222
  Serious: Yes (Other)
  Sender: FDA-Public Use
  Company Number: PHHY2011MK65773

PATIENT
  Sex: Female

DRUGS (3)
  1. ZOMETA [Suspect]
     Dosage: 4 MG, EVERY 28 DAYS
     Dates: end: 20110513
  2. XELODA [Concomitant]
     Dosage: 4000 MG, THREE WEEKS
  3. ARIMIDEX [Concomitant]
     Dosage: 1 MG, DAILY
     Dates: start: 20090101

REACTIONS (7)
  - PAIN IN JAW [None]
  - APHAGIA [None]
  - OSTEONECROSIS OF JAW [None]
  - ERYTHEMA [None]
  - GINGIVAL INFECTION [None]
  - OSTEITIS [None]
  - EXPOSED BONE IN JAW [None]
